FAERS Safety Report 14168365 (Version 1)
Quarter: 2017Q4

REPORT INFORMATION
  Report Type: Spontaneous
  Country: US (occurrence: None)
  Receive Date: 20171107
  Receipt Date: 20171107
  Transmission Date: 20180321
  Serious: No
  Sender: FDA-Public Use
  Company Number: None

PATIENT
  Age: 37 Year
  Sex: Female

DRUGS (1)
  1. HUMIRA [Suspect]
     Active Substance: ADALIMUMAB
     Route: 058
     Dates: start: 20170613

REACTIONS (13)
  - Gait disturbance [None]
  - Fatigue [None]
  - Headache [None]
  - Musculoskeletal pain [None]
  - Muscle spasms [None]
  - Vomiting [None]
  - Dizziness [None]
  - Loss of personal independence in daily activities [None]
  - Arthralgia [None]
  - Back pain [None]
  - Pain in extremity [None]
  - Uterine leiomyoma [None]
  - Myalgia [None]
